FAERS Safety Report 13242142 (Version 2)
Quarter: 2017Q1

REPORT INFORMATION
  Report Type: Report from Study
  Country: FR (occurrence: FR)
  Receive Date: 20170217
  Receipt Date: 20170301
  Transmission Date: 20170428
  Serious: Yes (Other)
  Sender: FDA-Public Use
  Company Number: FR-ASTELLAS-2017US005715

PATIENT
  Age: 62 Year
  Sex: Male
  Weight: 64 kg

DRUGS (1)
  1. TACROLIMUS. [Suspect]
     Active Substance: TACROLIMUS
     Indication: IMMUNOSUPPRESSION
     Route: 048
     Dates: start: 20160419, end: 20161202

REACTIONS (1)
  - Arteritis [Recovered/Resolved with Sequelae]

NARRATIVE: CASE EVENT DATE: 20160804
